FAERS Safety Report 22247469 (Version 2)
Quarter: 2024Q1

REPORT INFORMATION
  Report Type: Spontaneous
  Country: FR (occurrence: FR)
  Receive Date: 20230425
  Receipt Date: 20240205
  Transmission Date: 20240409
  Serious: Yes (Hospitalization)
  Sender: FDA-Public Use
  Company Number: FR-AFSSAPS-DJ2023000319

PATIENT
  Age: 53 Year
  Sex: Female

DRUGS (2)
  1. IBUPROFEN [Suspect]
     Active Substance: IBUPROFEN
     Indication: Headache
     Dosage: UNK
     Route: 048
     Dates: start: 20221223, end: 20221226
  2. TEGRETOL [Suspect]
     Active Substance: CARBAMAZEPINE
     Indication: Headache
     Dosage: 800 MILLIGRAM, DAILY
     Route: 048
     Dates: start: 20221212

REACTIONS (1)
  - Drug reaction with eosinophilia and systemic symptoms [Recovering/Resolving]

NARRATIVE: CASE EVENT DATE: 20221226
